FAERS Safety Report 18728510 (Version 1)
Quarter: 2021Q1

REPORT INFORMATION
  Report Type: Spontaneous
  Country: ES (occurrence: ES)
  Receive Date: 20210112
  Receipt Date: 20210112
  Transmission Date: 20210419
  Serious: Yes (Congenital Anomaly, Other)
  Sender: FDA-Public Use
  Company Number: ES-TEVA-2020-ES-1865821

PATIENT
  Age: 84 Year
  Sex: Male
  Weight: 75 kg

DRUGS (3)
  1. HIDROXICLOROQUINA (2143A) [Interacting]
     Active Substance: HYDROXYCHLOROQUINE
     Indication: COVID-19
     Dosage: 400MG
     Dates: start: 20200414, end: 20200419
  2. AZITROMICINA (7019A) [Suspect]
     Active Substance: AZITHROMYCIN
     Indication: COVID-19
     Dosage: 250MG
     Dates: start: 20200414, end: 20200418
  3. LOPINAVIR + RITONAVIR [Interacting]
     Active Substance: LOPINAVIR\RITONAVIR
     Indication: COVID-19
     Dosage: 400MG
     Dates: start: 20200414, end: 20200415

REACTIONS (2)
  - Drug interaction [Unknown]
  - Andersen-Tawil syndrome [Recovered/Resolved]

NARRATIVE: CASE EVENT DATE: 20200415
